FAERS Safety Report 6091233-X (Version None)
Quarter: 2009Q1

REPORT INFORMATION
  Report Type: 
  Country: None (occurrence: None)
  Receive Date: 20090220
  Receipt Date: 20090220
  Transmission Date: 20090719
  Serious: Yes (Life-Threatening)
  Sender: FDA-Public Use
  Company Number: None

PATIENT
  Age: 63 Year
  Sex: Male
  Weight: 90.7194 kg

DRUGS (2)
  1. WARFARIN SODIUM [Suspect]
     Indication: CORONARY ARTERY BYPASS
     Dosage: 3.75MG UNSTABLE DAILEY UNSTABLE PO
     Route: 048
     Dates: start: 20090101, end: 20090219
  2. WARFARIN SODIUM [Suspect]
     Indication: HEART VALVE REPLACEMENT
     Dosage: 3.75MG UNSTABLE DAILEY UNSTABLE PO
     Route: 048
     Dates: start: 20090101, end: 20090219

REACTIONS (2)
  - INTERNATIONAL NORMALISED RATIO INCREASED [None]
  - PRODUCT QUALITY ISSUE [None]
